FAERS Safety Report 4496770-7 (Version None)
Quarter: 2004Q4

REPORT INFORMATION
  Report Type: 
  Country: None (occurrence: None)
  Receive Date: 20041109
  Receipt Date: 20041101
  Transmission Date: 20050328
  Serious: Yes (Hospitalization)
  Sender: FDA-Public Use
  Company Number: US-MERCK-0411USA00272

PATIENT
  Age: 86 Year
  Sex: Male

DRUGS (1)
  1. VIOXX [Suspect]
     Indication: ARTHRITIS
     Route: 048
     Dates: end: 20020101

REACTIONS (3)
  - DIFFICULTY IN WALKING [None]
  - HEART RATE DECREASED [None]
  - POSTURE ABNORMAL [None]
